FAERS Safety Report 9303603 (Version 1)
Quarter: 2013Q2

REPORT INFORMATION
  Report Type: Spontaneous
  Country: GB (occurrence: GB)
  Receive Date: 20130522
  Receipt Date: 20130522
  Transmission Date: 20140414
  Serious: Yes (Other)
  Sender: FDA-Public Use
  Company Number: GB-PFIZER INC-2013155004

PATIENT
  Age: 46 Year
  Sex: Female

DRUGS (2)
  1. ISTIN [Suspect]
     Indication: HYPERTENSION
  2. NORIDAY [Concomitant]

REACTIONS (1)
  - Vaginal haemorrhage [Unknown]
